FAERS Safety Report 19325337 (Version 1)
Quarter: 2021Q2

REPORT INFORMATION
  Report Type: Spontaneous
  Country: US (occurrence: US)
  Receive Date: 20210528
  Receipt Date: 20210528
  Transmission Date: 20210717
  Serious: No
  Sender: FDA-Public Use
  Company Number: US-AMGEN-USASP2021082741

PATIENT
  Sex: Male
  Weight: 91 kg

DRUGS (2)
  1. ENBREL [Suspect]
     Active Substance: ETANERCEPT
     Indication: PRODUCT USED FOR UNKNOWN INDICATION
     Dosage: 30 MILLIGRAM
     Route: 065
  2. ENBREL [Suspect]
     Active Substance: ETANERCEPT
     Dosage: UNK
     Route: 065
     Dates: start: 20210101

REACTIONS (6)
  - Drug hypersensitivity [Unknown]
  - Dyspnoea [Unknown]
  - Underdose [Unknown]
  - Palpitations [Unknown]
  - Anxiety [Unknown]
  - Personality change [Unknown]
